FAERS Safety Report 9168155 (Version 1)
Quarter: 2013Q1

REPORT INFORMATION
  Report Type: Spontaneous
  Country: US (occurrence: US)
  Receive Date: 20130318
  Receipt Date: 20130318
  Transmission Date: 20140127
  Serious: Yes (Other)
  Sender: FDA-Public Use
  Company Number: US-AMGEN-USASP2013016157

PATIENT
  Age: 58 Year
  Sex: Female

DRUGS (20)
  1. PROLIA [Suspect]
     Indication: OSTEOPOROSIS POSTMENOPAUSAL
     Dosage: UNK
     Dates: start: 2011
  2. PRAMIPEXOLE [Concomitant]
  3. POTASSIUM [Concomitant]
  4. LEVOTHYROXINE [Concomitant]
  5. ATENOLOL [Concomitant]
  6. MULTIVITAMIN                       /00097801/ [Concomitant]
  7. CALCIUM WITH VITAMIN D             /00944201/ [Concomitant]
  8. GABAPENTIN [Concomitant]
  9. OMEPRAZOLE [Concomitant]
  10. TIZANIDINE [Concomitant]
  11. NUCYNTA [Concomitant]
  12. BUSPIRONE [Concomitant]
  13. SEROQUEL [Concomitant]
  14. QUETIAPINE [Concomitant]
  15. ALPRAZOLAM [Concomitant]
  16. MIRTAZAPINE [Concomitant]
  17. LORAZEPAM [Concomitant]
  18. CLONAZEPAM [Concomitant]
  19. INHALERIN [Concomitant]
  20. OXYGEN [Concomitant]

REACTIONS (8)
  - Paralysis [Unknown]
  - Locked-in syndrome [Unknown]
  - Intervertebral disc protrusion [Unknown]
  - Spinal fracture [Unknown]
  - Pain [Unknown]
  - Back pain [Unknown]
  - Musculoskeletal discomfort [Unknown]
  - Chronic obstructive pulmonary disease [Unknown]
